FAERS Safety Report 20669387 (Version 1)
Quarter: 2022Q2

REPORT INFORMATION
  Report Type: Spontaneous
  Country: US (occurrence: None)
  Receive Date: 20220402
  Receipt Date: 20220402
  Transmission Date: 20220720
  Serious: Yes (Other)
  Sender: FDA-Public Use
  Company Number: None

PATIENT
  Age: 50 Year
  Sex: Female
  Weight: 65.25 kg

DRUGS (12)
  1. PENICILLIN V POTASSIUM [Suspect]
     Active Substance: PENICILLIN V POTASSIUM
     Indication: Tooth infection
     Dates: start: 20220307, end: 20220327
  2. DOXYCYCLINE HYCLATE [Suspect]
     Active Substance: DOXYCYCLINE HYCLATE
  3. METRONIDAZOLE [Suspect]
     Active Substance: METRONIDAZOLE
  4. METRONIDAZOLE [Concomitant]
     Active Substance: METRONIDAZOLE
  5. Multi vitamin and multi mineral [Concomitant]
  6. VITAMIN C [Concomitant]
     Active Substance: ASCORBIC ACID
  7. ALPHA LIPOIC ACID [Concomitant]
     Active Substance: .ALPHA.-LIPOIC ACID
  8. collagen peptides [Concomitant]
  9. FLAXSEED [Concomitant]
     Active Substance: FLAX SEED
  10. DIMETHYL SULFONE [Concomitant]
     Active Substance: DIMETHYL SULFONE
  11. Claritin nightly [Concomitant]
  12. IBUPROFEN [Concomitant]
     Active Substance: IBUPROFEN

REACTIONS (9)
  - Drug ineffective [None]
  - Postprandial hypoglycaemia [None]
  - Dental fistula [None]
  - Fatigue [None]
  - Muscular weakness [None]
  - Dyspnoea [None]
  - Dizziness [None]
  - Gait disturbance [None]
  - Disorientation [None]

NARRATIVE: CASE EVENT DATE: 20220328
